FAERS Safety Report 8210729-5 (Version None)
Quarter: 2012Q1

REPORT INFORMATION
  Report Type: 
  Country: None (occurrence: None)
  Receive Date: 20120315
  Receipt Date: 20120302
  Transmission Date: 20120608
  Serious: Yes (Other)
  Sender: FDA-Public Use
  Company Number: US-BIOGENIDEC-2007BI010355

PATIENT
  Age: 48 Year
  Sex: Female

DRUGS (11)
  1. TYSABRI [Suspect]
     Route: 042
     Dates: start: 20071204, end: 20081208
  2. TYSABRI [Suspect]
     Route: 042
     Dates: start: 20061107, end: 20070410
  3. IMIPRAMINE [Concomitant]
  4. WELLBUTRIN [Concomitant]
  5. AMBIEN [Concomitant]
  6. TYSABRI [Suspect]
     Indication: MULTIPLE SCLEROSIS
     Route: 042
     Dates: start: 20061107, end: 20070410
  7. TYSABRI [Suspect]
     Route: 042
     Dates: start: 20071204, end: 20081208
  8. TYSABRI [Suspect]
     Route: 042
     Dates: start: 20100802
  9. TYSABRI [Suspect]
     Route: 042
     Dates: start: 20100802
  10. MOTRIN [Concomitant]
  11. AMANTADINE HCL [Concomitant]

REACTIONS (11)
  - HAEMATOCHEZIA [None]
  - PARAESTHESIA [None]
  - BALANCE DISORDER [None]
  - DYSGRAPHIA [None]
  - MUSCULOSKELETAL STIFFNESS [None]
  - BLOOD IRON DECREASED [None]
  - COLORECTAL CANCER METASTATIC [None]
  - HYPOAESTHESIA [None]
  - MULTIPLE SCLEROSIS [None]
  - ARTHROPATHY [None]
  - DYSARTHRIA [None]
